FAERS Safety Report 7437079-9 (Version None)
Quarter: 2011Q2

REPORT INFORMATION
  Report Type: 
  Country: None (occurrence: None)
  Receive Date: 20110426
  Receipt Date: 20110421
  Transmission Date: 20111010
  Serious: Yes (Hospitalization)
  Sender: FDA-Public Use
  Company Number: US-ELI_LILLY_AND_COMPANY-US201103006959

PATIENT
  Age: 82 Year
  Sex: Female
  Weight: 67.2 kg

DRUGS (13)
  1. CISPLATIN [Suspect]
     Indication: NON-SMALL CELL LUNG CANCER
     Dosage: 75 MG/M2, OTHER
     Route: 042
  2. VITAMIN B-12 [Concomitant]
     Dosage: UNK
  3. VITAMIN D [Concomitant]
     Dosage: UNK UNK, WEEKLY (1/W)
  4. PREVACID [Concomitant]
     Dosage: 30 DF, QD
     Route: 048
  5. SENOKOT [Concomitant]
     Dosage: UNK UNK, BID
     Route: 048
  6. LEVOTHYROXINE SODIUM [Concomitant]
     Dosage: 0.088 MG/KG, QD
     Route: 048
  7. PEMETREXED [Suspect]
     Indication: NON-SMALL CELL LUNG CANCER
     Dosage: 500 MG/M2, OTHER
     Route: 042
     Dates: start: 20110304
  8. EMEND [Concomitant]
     Dosage: UNK UNK, OTHER
     Route: 048
     Dates: start: 20110101
  9. COUMADIN [Concomitant]
     Dosage: UNK, OTHER
     Route: 048
     Dates: start: 20101201
  10. FOLIC ACID [Concomitant]
     Dosage: 10 MG, QD
     Route: 048
     Dates: start: 20110101
  11. DECADRON [Concomitant]
     Dosage: 4 MG, OTHER
     Route: 048
     Dates: start: 20110101
  12. ONDANSETRON [Concomitant]
     Indication: NAUSEA
     Dosage: 8 MG, PRN
     Route: 048
     Dates: start: 20110101
  13. K-DUR [Concomitant]
     Dosage: 20 MEQ, BID
     Route: 048

REACTIONS (3)
  - ANAEMIA [None]
  - DIARRHOEA [None]
  - ABDOMINAL TENDERNESS [None]
